FAERS Safety Report 4301270-0 (Version None)
Quarter: 2004Q1

REPORT INFORMATION
  Report Type: 
  Country: None (occurrence: None)
  Receive Date: 20040220
  Receipt Date: 20040220
  Transmission Date: 20041129
  Serious: Yes (Hospitalization)
  Sender: FDA-Public Use
  Company Number: None

PATIENT
  Sex: Female

DRUGS (1)
  1. AVINZA [Suspect]
     Indication: BACK DISORDER
     Dosage: ONE OR TWO Q AM
     Dates: start: 20040203, end: 20040213

REACTIONS (5)
  - DEHYDRATION [None]
  - ELECTROLYTE IMBALANCE [None]
  - NAUSEA [None]
  - RENAL FAILURE [None]
  - VOMITING [None]
